FAERS Safety Report 26100391 (Version 1)
Quarter: 2025Q4

REPORT INFORMATION
  Report Type: Spontaneous
  Country: US (occurrence: US)
  Receive Date: 20251128
  Receipt Date: 20251128
  Transmission Date: 20260117
  Serious: Yes (Other)
  Sender: ALKEM
  Company Number: US-ALKEM LABORATORIES LIMITED-US-ALKEM-2025-12817

PATIENT
  Age: 1 Day
  Sex: Male
  Weight: 2.4 kg

DRUGS (1)
  1. LIDOCAINE [Suspect]
     Active Substance: LIDOCAINE
     Indication: Arrhythmia prophylaxis
     Dosage: UNK

REACTIONS (3)
  - Local anaesthetic systemic toxicity [Recovered/Resolved]
  - Mydriasis [Recovered/Resolved]
  - Areflexia [Recovered/Resolved]
